FAERS Safety Report 23037167 (Version 1)
Quarter: 2023Q4

REPORT INFORMATION
  Report Type: Spontaneous
  Country: DE (occurrence: DE)
  Receive Date: 20231006
  Receipt Date: 20231006
  Transmission Date: 20240110
  Serious: Yes (Hospitalization, Other)
  Sender: FDA-Public Use
  Company Number: DE-ALKEM LABORATORIES LIMITED-DE-ALKEM-2023-08974

PATIENT
  Age: 46 Year
  Sex: Male
  Weight: 134 kg

DRUGS (5)
  1. CETUXIMAB [Suspect]
     Active Substance: CETUXIMAB
     Indication: Colorectal cancer metastatic
     Dosage: UNK (SOLUTION FOR INJECTION/INFUSION)
     Route: 042
     Dates: start: 20230727, end: 20230727
  2. IBUPROFEN [Suspect]
     Active Substance: IBUPROFEN
     Indication: Arthralgia
     Dosage: 400 MILLIGRAM, TABLET
     Route: 048
     Dates: start: 20200101
  3. CANDESARTAN [Suspect]
     Active Substance: CANDESARTAN
     Indication: Hypertension
     Dosage: 16 MILLIGRAM, QD (EVERY 1 DAY)
     Route: 048
     Dates: start: 20200101
  4. CLEMASTINE [Suspect]
     Active Substance: CLEMASTINE
     Indication: Antiallergic therapy
     Dosage: 2 MILLIGRAM, ONCE IN 2 WEEKS
     Route: 040
     Dates: start: 20230727, end: 20230727
  5. ENCORAFENIB [Suspect]
     Active Substance: ENCORAFENIB
     Indication: Colorectal cancer metastatic
     Dosage: 300 MILLIGRAM, QD (EVERY 1 DAY)
     Route: 048
     Dates: start: 20230713, end: 20230728

REACTIONS (1)
  - Acute kidney injury [Not Recovered/Not Resolved]

NARRATIVE: CASE EVENT DATE: 20230728
